FAERS Safety Report 16007967 (Version 1)
Quarter: 2019Q1

REPORT INFORMATION
  Report Type: Spontaneous
  Country: US (occurrence: US)
  Receive Date: 20190226
  Receipt Date: 20190226
  Transmission Date: 20190418
  Serious: Yes (Life-Threatening)
  Sender: FDA-Public Use
  Company Number: US-FRESENIUS KABI-FK201902066

PATIENT
  Age: 62 Year
  Sex: Male

DRUGS (2)
  1. HYDROMORPHONE HCL [Suspect]
     Active Substance: HYDROMORPHONE HYDROCHLORIDE
     Indication: BACK PAIN
     Route: 037
  2. BUPIVACAINE (MANUFACTURER UNKNOWN) [Suspect]
     Active Substance: BUPIVACAINE
     Indication: BACK PAIN
     Dosage: UNKNOWN
     Route: 037

REACTIONS (2)
  - Spinal shock [Recovered/Resolved]
  - Product administration error [Recovered/Resolved]
